FAERS Safety Report 15766799 (Version 1)
Quarter: 2018Q4

REPORT INFORMATION
  Report Type: Report from Study
  Country: ES (occurrence: ES)
  Receive Date: 20181227
  Receipt Date: 20181227
  Transmission Date: 20190205
  Serious: Yes (Other)
  Sender: FDA-Public Use
  Company Number: ES-MYLANLABS-2018M1095211

PATIENT
  Age: 41 Year
  Sex: Male

DRUGS (4)
  1. YURELAX 10 MG C?PSULAS DURAS [Suspect]
     Active Substance: CYCLOBENZAPRINE HYDROCHLORIDE
     Indication: BACK PAIN
     Dosage: 10 MILLIGRAM, QD (1-0-0)
     Route: 048
     Dates: start: 20170828, end: 20170915
  2. IBUPROFEN. [Suspect]
     Active Substance: IBUPROFEN
     Indication: BACK PAIN
     Dosage: 600 MILLIGRAM, Q8H (600MG CADA 8 HORAS)
     Route: 048
     Dates: start: 20170828, end: 20170915
  3. CURCUMA [Concomitant]
     Dosage: UNK
     Dates: start: 20170601, end: 20170828
  4. PARACETAMOL [Suspect]
     Active Substance: ACETAMINOPHEN
     Indication: BACK PAIN
     Dosage: 1 GRAM, Q8H (1GR/8H)
     Route: 048
     Dates: start: 20170828, end: 20170915

REACTIONS (1)
  - Hepatitis acute [Recovered/Resolved]

NARRATIVE: CASE EVENT DATE: 20170915
